FAERS Safety Report 7269486-1 (Version None)
Quarter: 2011Q1

REPORT INFORMATION
  Report Type: 
  Country: None (occurrence: None)
  Receive Date: 20110202
  Receipt Date: 20110124
  Transmission Date: 20110831
  Serious: Yes (Other)
  Sender: FDA-Public Use
  Company Number: US-BAYER-2011-008724

PATIENT
  Sex: Female

DRUGS (1)
  1. CLIMARA [Suspect]
     Indication: HOT FLUSH
     Dosage: UNK
     Route: 062
     Dates: start: 19890101

REACTIONS (5)
  - MENTAL IMPAIRMENT [None]
  - NERVOUSNESS [None]
  - HOT FLUSH [None]
  - TREMOR [None]
  - PALPITATIONS [None]
